FAERS Safety Report 6633252-8 (Version None)
Quarter: 2010Q1

REPORT INFORMATION
  Report Type: 
  Country: None (occurrence: None)
  Receive Date: 20100312
  Receipt Date: 20100305
  Transmission Date: 20100710
  Serious: Yes (Hospitalization)
  Sender: FDA-Public Use
  Company Number: US-AMGEN-QUU394226

PATIENT
  Sex: Female
  Weight: 77.2 kg

DRUGS (10)
  1. ENBREL [Suspect]
     Indication: RHEUMATOID ARTHRITIS
     Route: 058
     Dates: start: 20071231
  2. TEMAZEPAM [Concomitant]
  3. LEVOTHYROXINE [Concomitant]
  4. FOLIC ACID [Concomitant]
  5. PYRIDOSTIGMINE BROMIDE [Concomitant]
  6. PREDNISONE [Concomitant]
  7. ENALAPRIL MALEATE [Concomitant]
  8. SIMVASTATIN [Concomitant]
  9. ACTONEL [Concomitant]
  10. CALCIUM WITH VITAMIN D [Concomitant]

REACTIONS (2)
  - MYASTHENIA GRAVIS [None]
  - OSTEOPOROSIS [None]
